FAERS Safety Report 16445555 (Version 1)
Quarter: 2019Q2

REPORT INFORMATION
  Report Type: Spontaneous
  Country: US (occurrence: US)
  Receive Date: 20190618
  Receipt Date: 20190618
  Transmission Date: 20190711
  Serious: No
  Sender: FDA-Public Use
  Company Number: US-PFIZER INC-2019255722

PATIENT
  Age: 67 Year
  Sex: Female
  Weight: 72.57 kg

DRUGS (3)
  1. DARVON [BETAHISTINE MESILATE] [Suspect]
     Active Substance: BETAHISTINE MESILATE
     Dosage: UNK
  2. DEMEROL [Suspect]
     Active Substance: MEPERIDINE HYDROCHLORIDE
     Dosage: UNK
  3. CREOMULSION COUGH MEDICINE ADULT FORMULA [Suspect]
     Active Substance: DEXTROMETHORPHAN HYDROBROMIDE
     Dosage: UNK

REACTIONS (1)
  - Drug hypersensitivity [Unknown]
